FAERS Safety Report 9743050 (Version 2)
Quarter: 2014Q1

REPORT INFORMATION
  Report Type: Spontaneous
  Country: IT (occurrence: IT)
  Receive Date: 20131210
  Receipt Date: 20140205
  Transmission Date: 20141002
  Serious: Yes (Hospitalization)
  Sender: FDA-Public Use
  Company Number: IT-B.I. PHARMACEUTICALS,INC./RIDGEFIELD-2013-BI-40798IT

PATIENT
  Age: 84 Year
  Sex: Male

DRUGS (5)
  1. PRADAXA [Suspect]
     Indication: ATRIAL FIBRILLATION
     Dosage: 220 MG
     Route: 048
     Dates: start: 20131014, end: 20131114
  2. FUROSEMIDE [Concomitant]
  3. MONOKET [Concomitant]
  4. NEBILOX [Concomitant]
  5. ZYLORIC [Concomitant]

REACTIONS (1)
  - Aplasia [Recovered/Resolved]
